FAERS Safety Report 16305927 (Version 1)
Quarter: 2019Q2

REPORT INFORMATION
  Report Type: Spontaneous
  Country: US (occurrence: US)
  Receive Date: 20190513
  Receipt Date: 20190513
  Transmission Date: 20190711
  Serious: Yes (Other)
  Sender: FDA-Public Use
  Company Number: US-GLAXOSMITHKLINE-US2019081976

PATIENT

DRUGS (1)
  1. EXCEDRIN PM TRIPLE ACTION CAPLETS [Suspect]
     Active Substance: ACETAMINOPHEN\ASPIRIN\DIPHENHYDRAMINE CITRATE
     Indication: PRODUCT USED FOR UNKNOWN INDICATION
     Dosage: UNK

REACTIONS (8)
  - Dizziness [Unknown]
  - Syncope [Unknown]
  - Disorientation [Unknown]
  - Vomiting [Unknown]
  - Somnolence [Unknown]
  - Anxiety [Unknown]
  - Fall [Unknown]
  - Adverse drug reaction [Unknown]
